FAERS Safety Report 15284351 (Version 1)
Quarter: 2018Q3

REPORT INFORMATION
  Report Type: Spontaneous
  Country: US (occurrence: US)
  Receive Date: 20180731
  Receipt Date: 20180731
  Transmission Date: 20181010
  Serious: Yes (Disabling)
  Sender: FDA-Public Use
  Company Number: None

PATIENT
  Age: 57 Year
  Sex: Female
  Weight: 123.3 kg

DRUGS (4)
  1. ELIQUIS [Suspect]
     Active Substance: APIXABAN
     Indication: DEEP VEIN THROMBOSIS
     Dosage: ?          QUANTITY:1 TABLET(S);?
     Route: 048
     Dates: start: 20180618, end: 20180629
  2. LEVOFLAXIN [Concomitant]
     Active Substance: LEVOFLOXACIN
  3. PREVACID [Concomitant]
     Active Substance: LANSOPRAZOLE
  4. EFFEXOR [Concomitant]
     Active Substance: VENLAFAXINE HYDROCHLORIDE

REACTIONS (9)
  - Peripheral swelling [None]
  - C-reactive protein increased [None]
  - Arthralgia [None]
  - Joint swelling [None]
  - Walking aid user [None]
  - Gait disturbance [None]
  - Sciatica [None]
  - Infection [None]
  - Red blood cell sedimentation rate increased [None]

NARRATIVE: CASE EVENT DATE: 20180630
